FAERS Safety Report 20300186 (Version 1)
Quarter: 2022Q1

REPORT INFORMATION
  Report Type: Spontaneous
  Country: US (occurrence: None)
  Receive Date: 20220105
  Receipt Date: 20220105
  Transmission Date: 20220424
  Serious: No
  Sender: FDA-Public Use
  Company Number: None

PATIENT

DRUGS (1)
  1. GLATIRAMER [Suspect]
     Active Substance: GLATIRAMER

REACTIONS (3)
  - Chest discomfort [None]
  - Erythema [None]
  - Palmar erythema [None]

NARRATIVE: CASE EVENT DATE: 20211220
